FAERS Safety Report 8312717-7 (Version None)
Quarter: 2012Q2

REPORT INFORMATION
  Report Type: 
  Country: None (occurrence: None)
  Receive Date: 20120426
  Receipt Date: 20120416
  Transmission Date: 20120825
  Serious: Yes (Hospitalization)
  Sender: FDA-Public Use
  Company Number: FR-BIOGENIDEC-2012BI004883

PATIENT
  Age: 66 Year
  Sex: Female
  Weight: 90 kg

DRUGS (7)
  1. AMLODIPINE BESYLATE [Concomitant]
     Indication: HYPERTENSION
  2. MEDROL [Concomitant]
     Indication: VIITH NERVE PARALYSIS
     Route: 048
     Dates: start: 20120105
  3. LIORESAL [Concomitant]
     Indication: MUSCLE SPASTICITY
  4. AVONEX [Suspect]
     Indication: MULTIPLE SCLEROSIS
     Route: 030
     Dates: end: 20031001
  5. AVONEX [Suspect]
     Route: 030
     Dates: start: 20031001, end: 20120125
  6. NEXIUM [Concomitant]
     Indication: PROPHYLAXIS
     Dates: start: 20120105
  7. ATEPADENE [Concomitant]
     Indication: BACK PAIN

REACTIONS (1)
  - PHLEBITIS [None]
